FAERS Safety Report 14699002 (Version 1)
Quarter: 2018Q1

REPORT INFORMATION
  Report Type: Spontaneous
  Country: GB (occurrence: GB)
  Receive Date: 20180330
  Receipt Date: 20180330
  Transmission Date: 20180509
  Serious: Yes (Other)
  Sender: FDA-Public Use
  Company Number: GB-MICRO LABS LIMITED-BB2018-00450

PATIENT
  Age: 78 Year
  Sex: Male
  Weight: 84 kg

DRUGS (5)
  1. VERAPAMIL HYDROCHLORIDE. [Concomitant]
     Active Substance: VERAPAMIL HYDROCHLORIDE
     Route: 065
  2. TAMSULOSIN HYDROCHLORIDE. [Concomitant]
     Active Substance: TAMSULOSIN HYDROCHLORIDE
     Route: 065
  3. FUROSEMIDE. [Concomitant]
     Active Substance: FUROSEMIDE
     Route: 065
  4. GLIMEPIRIDE 1 MG TABLETS [Suspect]
     Active Substance: GLIMEPIRIDE
     Indication: TYPE 2 DIABETES MELLITUS
     Route: 048
     Dates: start: 20170601
  5. FINASTERIDE. [Concomitant]
     Active Substance: FINASTERIDE
     Route: 065

REACTIONS (2)
  - Infection [Not Recovered/Not Resolved]
  - Thyroid hormones increased [Not Recovered/Not Resolved]

NARRATIVE: CASE EVENT DATE: 20170701
